FAERS Safety Report 10209858 (Version 1)
Quarter: 2014Q2

REPORT INFORMATION
  Report Type: Spontaneous
  Country: US (occurrence: US)
  Receive Date: 20140602
  Receipt Date: 20140602
  Transmission Date: 20141212
  Serious: Yes (Other)
  Sender: FDA-Public Use
  Company Number: US-AMGEN-USASP2014040186

PATIENT
  Age: 68 Year
  Sex: Female
  Weight: 55.33 kg

DRUGS (16)
  1. ENBREL [Suspect]
     Indication: PRODUCT USED FOR UNKNOWN INDICATION
     Dosage: 50 MG, QWK
     Route: 058
  2. PREDNISONE [Concomitant]
     Dosage: 5 MG, UNK
  3. ZOLOFT [Concomitant]
     Dosage: 100 MG, UNK
  4. ZETIA [Concomitant]
     Dosage: 10 MG, UNK
  5. SOMA [Concomitant]
     Dosage: 350 MG, UNK
  6. SIMVASTATIN [Concomitant]
     Dosage: 5 MG, UNK
  7. OMEPRAZOLE [Concomitant]
     Dosage: 20 MG, UNK
  8. DILAUDID [Concomitant]
     Dosage: 4 MG, UNK
  9. ZOLPIDEM [Concomitant]
     Dosage: 12.5 MG, UNK
  10. NEURONTIN [Concomitant]
     Dosage: 600 MG, UNK
  11. METOPROLOL [Concomitant]
     Dosage: 25 MG, UNK
  12. POTASSIUM [Concomitant]
     Dosage: 75 MG, UNK
  13. XANAX [Concomitant]
     Dosage: 0.25 MG, UNK
  14. METHADONE [Concomitant]
     Dosage: 10 MG, UNK
  15. PARAFON FORTE [Concomitant]
     Dosage: 500 MG, UNK
  16. DOLOBID [Concomitant]
     Dosage: 250 MG, UNK

REACTIONS (3)
  - Rheumatoid arthritis [Unknown]
  - Stress [Unknown]
  - Pain [Unknown]
